FAERS Safety Report 15061797 (Version 2)
Quarter: 2018Q3

REPORT INFORMATION
  Report Type: Spontaneous
  Country: AT (occurrence: AT)
  Receive Date: 20180625
  Receipt Date: 20180706
  Transmission Date: 20181010
  Serious: Yes (Hospitalization, Other)
  Sender: FDA-Public Use
  Company Number: AT-BAUSCH-BL-2018-017359

PATIENT
  Sex: Female

DRUGS (14)
  1. OXALIPLATIN. [Suspect]
     Active Substance: OXALIPLATIN
     Indication: COLORECTAL CANCER METASTATIC
     Dosage: CYCLIC
     Route: 065
     Dates: start: 2016, end: 2016
  2. AVASTIN [Suspect]
     Active Substance: BEVACIZUMAB
     Dosage: CYCLIC
     Route: 065
     Dates: start: 201702, end: 201702
  3. OXALIPLATIN. [Suspect]
     Active Substance: OXALIPLATIN
     Dosage: CYCLIC
     Route: 065
     Dates: start: 2016, end: 201611
  4. OXALIPLATIN. [Suspect]
     Active Substance: OXALIPLATIN
     Dosage: CYCLIC
     Route: 065
     Dates: start: 201711, end: 201712
  5. LEUCOVORIN. [Suspect]
     Active Substance: LEUCOVORIN
     Dosage: CYCLIC
     Route: 065
     Dates: start: 201711
  6. FLUOROURACIL. [Suspect]
     Active Substance: FLUOROURACIL
     Dosage: CYCLIC
     Route: 065
     Dates: start: 2016, end: 201611
  7. AVASTIN [Suspect]
     Active Substance: BEVACIZUMAB
     Dosage: CYCLIC
     Route: 065
     Dates: start: 201711
  8. XELODA [Suspect]
     Active Substance: CAPECITABINE
     Indication: COLORECTAL CANCER METASTATIC
     Dosage: 80 PERCENT DOSE, CYCLIC
     Route: 065
     Dates: start: 201611, end: 201702
  9. FLUOROURACIL. [Suspect]
     Active Substance: FLUOROURACIL
     Indication: COLORECTAL CANCER METASTATIC
     Dosage: CYCLIC
     Route: 065
     Dates: start: 2016, end: 2016
  10. FLUOROURACIL. [Suspect]
     Active Substance: FLUOROURACIL
     Dosage: CYCLIC
     Route: 065
     Dates: start: 201711
  11. XELODA [Suspect]
     Active Substance: CAPECITABINE
     Dosage: 80 PERCENT DOSE, CYCLIC
     Route: 065
     Dates: start: 201702, end: 201702
  12. LEUCOVORIN. [Suspect]
     Active Substance: LEUCOVORIN
     Indication: COLORECTAL CANCER METASTATIC
     Dosage: CYCLIC
     Route: 065
     Dates: start: 2016, end: 201611
  13. AVASTIN [Suspect]
     Active Substance: BEVACIZUMAB
     Indication: COLORECTAL CANCER METASTATIC
     Dosage: CYCLIC
     Route: 065
     Dates: start: 2016, end: 201702
  14. IRINOTECAN [Suspect]
     Active Substance: IRINOTECAN
     Indication: COLORECTAL CANCER METASTATIC
     Dosage: CYCLIC
     Route: 065
     Dates: start: 201712, end: 201712

REACTIONS (8)
  - Urinary tract infection [Unknown]
  - Palmar-plantar erythrodysaesthesia syndrome [Unknown]
  - Pyrexia [Unknown]
  - Drug hypersensitivity [Unknown]
  - Device related sepsis [Unknown]
  - Polyneuropathy [Unknown]
  - Chills [Unknown]
  - Faecaloma [Unknown]

NARRATIVE: CASE EVENT DATE: 201609
